FAERS Safety Report 7903782-7 (Version None)
Quarter: 2011Q4

REPORT INFORMATION
  Report Type: 
  Country: None (occurrence: None)
  Receive Date: 20111109
  Receipt Date: 20111028
  Transmission Date: 20120403
  Serious: Yes (Other)
  Sender: FDA-Public Use
  Company Number: BR-SANOFI-AVENTIS-2011SA071417

PATIENT
  Age: 85 Year
  Sex: Female
  Weight: 51 kg

DRUGS (7)
  1. VERAPAMIL [Concomitant]
     Route: 048
  2. SYNTHROID [Concomitant]
     Indication: HORMONE THERAPY
     Route: 048
  3. ALDACTONE [Concomitant]
     Indication: BLOOD PRESSURE
     Route: 048
  4. ALL OTHER THERAPEUTIC PRODUCTS [Interacting]
     Indication: INFECTION
     Route: 065
     Dates: start: 20110101, end: 20110101
  5. APIDRA [Suspect]
     Dosage: 2-3 IU ACCORDING TO GLYCEMIC VALUE
     Route: 065
     Dates: start: 20090101
  6. LANTUS [Interacting]
     Dosage: IN THE MORNING
     Route: 058
     Dates: start: 20050101
  7. METFORMIN HCL [Concomitant]
     Route: 048

REACTIONS (13)
  - TACHYCARDIA [None]
  - HYPOGLYCAEMIA [None]
  - DRUG ADMINISTRATION ERROR [None]
  - CONFUSIONAL STATE [None]
  - DRUG INTERACTION [None]
  - ABDOMINAL PAIN UPPER [None]
  - SPEECH DISORDER [None]
  - LUNG INFECTION [None]
  - HYPERHIDROSIS [None]
  - FATIGUE [None]
  - INJECTION SITE PAIN [None]
  - NASOPHARYNGITIS [None]
  - HYPERGLYCAEMIA [None]
